FAERS Safety Report 6010997-4 (Version None)
Quarter: 2008Q4

REPORT INFORMATION
  Report Type: 
  Country: None (occurrence: None)
  Receive Date: 20081218
  Receipt Date: 20081212
  Transmission Date: 20090506
  Serious: Yes (Other)
  Sender: FDA-Public Use
  Company Number: B0550839A

PATIENT
  Age: 83 Year
  Sex: Female

DRUGS (6)
  1. AMOXIL [Suspect]
     Indication: RESPIRATORY TRACT INFECTION
     Dosage: 500MG THREE TIMES PER DAY
     Route: 048
     Dates: start: 20080830, end: 20080902
  2. ISTIN [Concomitant]
     Route: 065
  3. LIPITOR [Concomitant]
     Route: 065
  4. BETALOC [Concomitant]
     Route: 065
  5. LANSOPRAZOLE [Concomitant]
     Route: 065
  6. NU-SEALS ASPIRIN [Concomitant]
     Route: 065

REACTIONS (2)
  - JAUNDICE [None]
  - LIVER FUNCTION TEST ABNORMAL [None]
